FAERS Safety Report 8762228 (Version 1)
Quarter: 2012Q4

REPORT INFORMATION
  Report Type: 
  Country: GB (occurrence: GB)
  Receive Date: 20120829
  Receipt Date: 20120829
  Transmission Date: 20130627
  Serious: Yes (Life-Threatening)
  Sender: FDA-Public Use
  Company Number: GB-PFIZER INC-2012208092

PATIENT
  Age: 18 Year
  Sex: Female
  Weight: 50 kg

DRUGS (1)
  1. DEPO-PROVERA [Suspect]
     Indication: CONTRACEPTION
     Dosage: 150 mg, UNK
     Route: 030
     Dates: start: 20120813, end: 20120813

REACTIONS (2)
  - Eye pruritus [Recovering/Resolving]
  - Chest discomfort [Recovering/Resolving]
